FAERS Safety Report 13972695 (Version 1)
Quarter: 2017Q3

REPORT INFORMATION
  Report Type: Spontaneous
  Country: US (occurrence: US)
  Receive Date: 20170914
  Receipt Date: 20170914
  Transmission Date: 20171128
  Serious: No
  Sender: FDA-Public Use
  Company Number: US-ARALEZ PHARMACEUTICALS R+D INC.-2017-ARA-000536

PATIENT
  Sex: Female

DRUGS (2)
  1. YOSPRALA [Suspect]
     Active Substance: ASPIRIN\OMEPRAZOLE
     Indication: TRANSIENT ISCHAEMIC ATTACK
     Dosage: 81/40 MG,QD
  2. YOSPRALA [Suspect]
     Active Substance: ASPIRIN\OMEPRAZOLE
     Dosage: 1/2 TABLET

REACTIONS (2)
  - Headache [Unknown]
  - Intentional product misuse [Recovered/Resolved]
